FAERS Safety Report 14849032 (Version 1)
Quarter: 2018Q2

REPORT INFORMATION
  Report Type: Spontaneous
  Country: PH (occurrence: PH)
  Receive Date: 20180504
  Receipt Date: 20180504
  Transmission Date: 20180711
  Serious: Yes (Death)
  Sender: FDA-Public Use
  Company Number: PH-JUBILANT CADISTA PHARMACEUTICALS-2018JUB00156

PATIENT
  Age: 24 Year
  Sex: Female

DRUGS (1)
  1. PREDNISONE. [Suspect]
     Active Substance: PREDNISONE
     Indication: OCULAR NEOPLASM
     Dosage: 40 MG, 1X/DAY
     Route: 048

REACTIONS (1)
  - Acute hepatic failure [Fatal]
